FAERS Safety Report 21600977 (Version 2)
Quarter: 2023Q1

REPORT INFORMATION
  Report Type: Report from Study
  Country: US (occurrence: US)
  Receive Date: 20221116
  Receipt Date: 20230217
  Transmission Date: 20230417
  Serious: Yes (Other)
  Sender: FDA-Public Use
  Company Number: US-TAKEDA-2022TUS084080

PATIENT
  Age: 62 Year
  Sex: Male
  Weight: 93.878 kg

DRUGS (76)
  1. PARATHYROID HORMONE [Suspect]
     Active Substance: PARATHYROID HORMONE
     Indication: Hypoparathyroidism
     Dosage: 50 MICROGRAM, QD
     Route: 065
     Dates: start: 20151223, end: 20160129
  2. PARATHYROID HORMONE [Suspect]
     Active Substance: PARATHYROID HORMONE
     Indication: Hypoparathyroidism
     Dosage: 50 MICROGRAM, QD
     Route: 065
     Dates: start: 20151223, end: 20160129
  3. PARATHYROID HORMONE [Suspect]
     Active Substance: PARATHYROID HORMONE
     Indication: Hypoparathyroidism
     Dosage: 50 MICROGRAM, QD
     Route: 065
     Dates: start: 20151223, end: 20160129
  4. PARATHYROID HORMONE [Suspect]
     Active Substance: PARATHYROID HORMONE
     Dosage: 75 MICROGRAM, QD
     Route: 065
     Dates: start: 20160129, end: 20160824
  5. PARATHYROID HORMONE [Suspect]
     Active Substance: PARATHYROID HORMONE
     Dosage: 75 MICROGRAM, QD
     Route: 065
     Dates: start: 20160129, end: 20160824
  6. PARATHYROID HORMONE [Suspect]
     Active Substance: PARATHYROID HORMONE
     Dosage: 75 MICROGRAM, QD
     Route: 065
     Dates: start: 20160129, end: 20160824
  7. PARATHYROID HORMONE [Suspect]
     Active Substance: PARATHYROID HORMONE
     Dosage: 50 MICROGRAM, QD
     Route: 065
     Dates: start: 20160824, end: 20180822
  8. PARATHYROID HORMONE [Suspect]
     Active Substance: PARATHYROID HORMONE
     Dosage: 50 MICROGRAM, QD
     Route: 065
     Dates: start: 20160824, end: 20180822
  9. PARATHYROID HORMONE [Suspect]
     Active Substance: PARATHYROID HORMONE
     Dosage: 50 MICROGRAM, QD
     Route: 065
     Dates: start: 20160824, end: 20180822
  10. PARATHYROID HORMONE [Suspect]
     Active Substance: PARATHYROID HORMONE
     Dosage: 25 MICROGRAM, QD
     Route: 065
     Dates: start: 20180822, end: 201909
  11. PARATHYROID HORMONE [Suspect]
     Active Substance: PARATHYROID HORMONE
     Dosage: 25 MICROGRAM, QD
     Route: 065
     Dates: start: 20180822, end: 201909
  12. PARATHYROID HORMONE [Suspect]
     Active Substance: PARATHYROID HORMONE
     Dosage: 25 MICROGRAM, QD
     Route: 065
     Dates: start: 20180822, end: 201909
  13. PRASTERONE [Concomitant]
     Active Substance: PRASTERONE
     Indication: Product used for unknown indication
     Dosage: UNK
     Dates: start: 20120606, end: 20190215
  14. ERYTHROMYCIN [Concomitant]
     Active Substance: ERYTHROMYCIN
     Indication: Eyelid disorder
     Dosage: UNK
     Route: 065
     Dates: start: 20120430
  15. URSODIOL [Concomitant]
     Active Substance: URSODIOL
     Indication: Amnesia
     Dosage: UNK
     Route: 065
     Dates: start: 20110915, end: 20150908
  16. URSODIOL [Concomitant]
     Active Substance: URSODIOL
     Dosage: UNK
     Route: 065
     Dates: start: 20150908
  17. PREDNISONE [Concomitant]
     Active Substance: PREDNISONE
     Indication: Actinic keratosis
     Dosage: UNK
     Dates: start: 20130322, end: 20150105
  18. PREDNISONE [Concomitant]
     Active Substance: PREDNISONE
     Dosage: UNK
     Dates: start: 20150105, end: 20150227
  19. PREDNISONE [Concomitant]
     Active Substance: PREDNISONE
     Dosage: UNK
     Dates: start: 20160811, end: 20161006
  20. POLYCARBOPHIL [Concomitant]
     Active Substance: POLYCARBOPHIL
     Indication: Crohn^s disease
     Dosage: UNK
     Dates: start: 20140715
  21. TRAZODONE [Concomitant]
     Active Substance: TRAZODONE HYDROCHLORIDE
     Indication: Depression
     Dosage: UNK
     Dates: start: 20140715, end: 20190304
  22. LEVOTHYROXINE [Concomitant]
     Active Substance: LEVOTHYROXINE
     Indication: Hypothyroidism
     Dosage: UNK
     Dates: start: 20140715, end: 20141016
  23. LEVOTHYROXINE [Concomitant]
     Active Substance: LEVOTHYROXINE
     Dosage: UNK
     Dates: start: 20141016, end: 20160504
  24. LEVOTHYROXINE [Concomitant]
     Active Substance: LEVOTHYROXINE
     Dosage: UNK
     Dates: start: 20160504
  25. WARFARIN [Concomitant]
     Active Substance: WARFARIN
     Dosage: UNK
     Dates: start: 20140605, end: 20150701
  26. WARFARIN [Concomitant]
     Active Substance: WARFARIN
     Dosage: UNK
     Dates: start: 20150701, end: 20160421
  27. VITAMIN B COMPLEX [Concomitant]
     Active Substance: CYANOCOBALAMIN\DEXPANTHENOL\NIACINAMIDE\PYRIDOXINE HYDROCHLORIDE\RIBOFLAVIN 5^-PHOSPHATE SODIUM\THIA
     Dosage: UNK
     Dates: start: 20140505, end: 20150908
  28. CYANOCOBALAMIN [Concomitant]
     Active Substance: CYANOCOBALAMIN
     Dosage: UNK
     Dates: start: 20140505, end: 20150908
  29. CHOLECALCIFEROL [Concomitant]
     Active Substance: CHOLECALCIFEROL
     Dosage: UNK
     Dates: start: 20140502, end: 20140918
  30. POTASSIUM [Concomitant]
     Active Substance: POTASSIUM
     Dosage: UNK
     Dates: start: 20140502, end: 20150908
  31. HYDROCORTISONE [Concomitant]
     Active Substance: HYDROCORTISONE
     Indication: Actinic keratosis
     Dosage: UNK
     Dates: start: 20131210, end: 20150704
  32. HYDROCORTISONE [Concomitant]
     Active Substance: HYDROCORTISONE
     Dosage: UNK
     Dates: start: 20160527, end: 20170707
  33. HYDROCORTISONE [Concomitant]
     Active Substance: HYDROCORTISONE
     Dosage: UNK
     Dates: start: 20170707, end: 20190215
  34. SERTRALINE [Concomitant]
     Active Substance: SERTRALINE HYDROCHLORIDE
     Indication: Amnesia
     Dosage: UNK
     Dates: start: 20130820, end: 20140731
  35. BUPROPION [Concomitant]
     Active Substance: BUPROPION
     Indication: Cholangitis sclerosing
     Dosage: UNK
     Dates: start: 20130503, end: 20160318
  36. BUPROPION [Concomitant]
     Active Substance: BUPROPION
     Dosage: UNK
     Dates: start: 20160318, end: 20190401
  37. ALBUTEROL [Concomitant]
     Active Substance: ALBUTEROL
     Indication: Asthma
     Dosage: UNK
     Dates: start: 20121126, end: 20160908
  38. GLUCOSAMINE [Concomitant]
     Active Substance: GLUCOSAMINE
     Indication: Prophylaxis
     Dosage: UNK
     Dates: start: 20150112, end: 20150908
  39. OFLOXACIN [Concomitant]
     Active Substance: OFLOXACIN
     Indication: Eyelid disorder
     Dosage: UNK
     Dates: start: 20140724
  40. FISH OIL [Concomitant]
     Active Substance: FISH OIL
     Dosage: UNK
     Dates: start: 20140725, end: 20150908
  41. CINNAMON [Concomitant]
     Active Substance: CINNAMON
     Indication: Prophylaxis
     Dosage: UNK
     Dates: start: 20140725, end: 20150908
  42. SULFAMETHOXAZOLE\TRIMETHOPRIM [Concomitant]
     Active Substance: SULFAMETHOXAZOLE\TRIMETHOPRIM
     Indication: Prophylaxis
     Dosage: UNK
     Dates: start: 20141016, end: 20150227
  43. DULOXETINE [Concomitant]
     Active Substance: DULOXETINE
     Indication: Autoimmune thyroiditis
     Dosage: UNK
     Dates: start: 20141203
  44. DULOXETINE [Concomitant]
     Active Substance: DULOXETINE
     Dosage: UNK
     Dates: start: 20171201
  45. METOPROLOL [Concomitant]
     Active Substance: METOPROLOL
     Indication: Hypertension
     Dosage: UNK
     Dates: start: 20150814, end: 20190215
  46. NYSTATIN [Concomitant]
     Active Substance: NYSTATIN
     Indication: Tinea pedis
     Dosage: UNK
     Dates: start: 20150707, end: 20151020
  47. KETOCONAZOLE [Concomitant]
     Active Substance: KETOCONAZOLE
     Indication: Seborrhoeic dermatitis
     Dosage: UNK
     Dates: start: 20150320, end: 20190215
  48. MESALAMINE [Concomitant]
     Active Substance: MESALAMINE
     Indication: Crohn^s disease
     Dosage: UNK
     Dates: start: 20150901, end: 20160909
  49. MESALAMINE [Concomitant]
     Active Substance: MESALAMINE
     Dosage: UNK
     Route: 048
     Dates: start: 20170801
  50. COSYNTROPIN [Concomitant]
     Active Substance: COSYNTROPIN
     Indication: Autoimmune thyroiditis
     Dosage: UNK
     Dates: start: 20151231, end: 20160318
  51. APIXABAN [Concomitant]
     Active Substance: APIXABAN
     Indication: Anticoagulant therapy
     Dosage: UNK
     Dates: start: 20160421, end: 20180615
  52. TRIAMCINOLONE [Concomitant]
     Active Substance: TRIAMCINOLONE
     Indication: Seborrhoeic dermatitis
     Dosage: UNK
     Dates: start: 20160415, end: 20161202
  53. DIPHENHYDRAMINE [Concomitant]
     Active Substance: DIPHENHYDRAMINE
     Dosage: UNK
     Dates: start: 20160811, end: 20161006
  54. OMEPRAZOLE [Concomitant]
     Active Substance: OMEPRAZOLE
     Indication: Chronic gastritis
     Dosage: UNK
     Dates: start: 20161130, end: 20170619
  55. ACETAMINOPHEN [Concomitant]
     Active Substance: ACETAMINOPHEN
     Dosage: UNK
     Dates: start: 20171121, end: 20180928
  56. ACETAMINOPHEN [Concomitant]
     Active Substance: ACETAMINOPHEN
     Dosage: UNK
     Dates: start: 20181022
  57. CHLORZOXAZONE [Concomitant]
     Active Substance: CHLORZOXAZONE
     Indication: Prophylaxis
     Dosage: UNK
     Route: 048
     Dates: start: 20180214, end: 20180404
  58. LORAZEPAM [Concomitant]
     Active Substance: LORAZEPAM
     Indication: Prophylaxis
     Dosage: UNK
     Route: 048
     Dates: start: 20171026, end: 20180723
  59. LORAZEPAM [Concomitant]
     Active Substance: LORAZEPAM
     Dosage: UNK
     Route: 048
     Dates: start: 20190404
  60. PROCTOZONE-H [Concomitant]
     Indication: Crohn^s disease
     Dosage: UNK
     Route: 061
     Dates: start: 20170707, end: 20170707
  61. LEVAQUIN [Concomitant]
     Active Substance: LEVOFLOXACIN
     Indication: Pneumonia
     Dosage: UNK
     Route: 048
     Dates: start: 20180209, end: 20180213
  62. PANTOPRAZOLE [Concomitant]
     Active Substance: PANTOPRAZOLE
     Indication: Cholangitis acute
     Dosage: UNK
     Route: 048
     Dates: start: 20180615, end: 20180913
  63. RIVAROXABAN [Concomitant]
     Active Substance: RIVAROXABAN
     Indication: Prophylaxis
     Dosage: UNK
     Route: 048
     Dates: start: 20180615
  64. GABAPENTIN [Concomitant]
     Active Substance: GABAPENTIN
     Indication: Cholecystectomy
     Dosage: UNK
     Route: 048
     Dates: start: 20181001, end: 20181015
  65. GALANTAMINE [Concomitant]
     Active Substance: GALANTAMINE
     Dosage: UNK
     Route: 048
     Dates: start: 20180918, end: 20190215
  66. TRAMADOL [Concomitant]
     Active Substance: TRAMADOL
     Indication: Cholangitis
     Dosage: UNK
     Route: 048
     Dates: start: 20181001, end: 20181008
  67. ZOSYN [Concomitant]
     Active Substance: PIPERACILLIN SODIUM\TAZOBACTAM SODIUM
     Indication: Infection
     Dosage: UNK
     Route: 042
     Dates: start: 20200118, end: 20200121
  68. CEFEPIME [Concomitant]
     Active Substance: CEFEPIME HYDROCHLORIDE
     Indication: Bile duct stone
     Dosage: UNK
     Route: 042
     Dates: start: 20210505, end: 20210519
  69. OXYCODONE [Concomitant]
     Active Substance: OXYCODONE
     Indication: Cholangitis
     Dosage: UNK
     Route: 048
     Dates: start: 20210513, end: 20210518
  70. OXYCODONE [Concomitant]
     Active Substance: OXYCODONE
     Dosage: UNK
     Route: 048
     Dates: start: 20210928, end: 20211002
  71. LEVOFLOXACIN [Concomitant]
     Active Substance: LEVOFLOXACIN
     Indication: Cholangitis
     Dosage: UNK
     Route: 048
     Dates: start: 20210708, end: 20210712
  72. CIPROFLOXACIN [Concomitant]
     Active Substance: CIPROFLOXACIN
     Indication: Cholangitis
     Dosage: UNK
     Route: 048
     Dates: start: 20210928, end: 20211005
  73. XARELTO [Concomitant]
     Active Substance: RIVAROXABAN
     Dosage: UNK
     Dates: start: 20210512
  74. ERTAPENEM [Concomitant]
     Active Substance: ERTAPENEM
     Indication: Sepsis
     Dosage: UNK
     Dates: start: 20180611, end: 20180624
  75. VANCOMYCIN [Concomitant]
     Active Substance: VANCOMYCIN
     Indication: Sepsis
     Dosage: UNK
     Route: 065
     Dates: start: 20180609, end: 20180611
  76. AMOXICILLIN AND CLAVULANATE POTASSIUM [Concomitant]
     Active Substance: AMOXICILLIN\CLAVULANATE POTASSIUM
     Indication: Sepsis
     Dosage: UNK
     Route: 065
     Dates: start: 20180615, end: 2018

REACTIONS (1)
  - Pneumonia [Recovered/Resolved]

NARRATIVE: CASE EVENT DATE: 20180209
